FAERS Safety Report 25993625 (Version 2)
Quarter: 2025Q4

REPORT INFORMATION
  Report Type: Report from Study
  Country: US (occurrence: US)
  Receive Date: 20251104
  Receipt Date: 20251107
  Transmission Date: 20260118
  Serious: Yes (Other)
  Sender: JOHNSON AND JOHNSON
  Company Number: US-JNJFOC-20251034043

PATIENT
  Age: 5 Decade
  Sex: Female

DRUGS (13)
  1. SPRAVATO [Suspect]
     Active Substance: ESKETAMINE
     Indication: Depression
     Dosage: ^^84 MG, 11 TOTAL DOSES^^
     Route: 045
     Dates: start: 20230213, end: 20230508
  2. SPRAVATO [Suspect]
     Active Substance: ESKETAMINE
     Dosage: ^^56 MG, 2 TOTAL DOSES^^
     Route: 045
     Dates: start: 20230515, end: 20230522
  3. SPRAVATO [Suspect]
     Active Substance: ESKETAMINE
     Dosage: ^^84 MG, 4 TOTAL DOSES^^
     Route: 045
     Dates: start: 20230530, end: 20230629
  4. SPRAVATO [Suspect]
     Active Substance: ESKETAMINE
     Dosage: ^^56 MG, 3 TOTAL DOSES^^
     Route: 045
     Dates: start: 20230710, end: 20230731
  5. SPRAVATO [Suspect]
     Active Substance: ESKETAMINE
     Dosage: ^^84 MG, 1 TOTAL DOSE^^
     Route: 045
     Dates: start: 20230810, end: 20230810
  6. SPRAVATO [Suspect]
     Active Substance: ESKETAMINE
     Dosage: ^^56 MG, 2 TOTAL DOSES^^
     Route: 045
     Dates: start: 20230822, end: 20230831
  7. SPRAVATO [Suspect]
     Active Substance: ESKETAMINE
     Dosage: ^^28 MG, 19 TOTAL DOSES^^
     Route: 045
     Dates: start: 20230911, end: 20240215
  8. SPRAVATO [Suspect]
     Active Substance: ESKETAMINE
     Dosage: ^^56 MG, 9 TOTAL DOSES^^
     Route: 045
     Dates: start: 20240306, end: 20240530
  9. SPRAVATO [Suspect]
     Active Substance: ESKETAMINE
     Dosage: ^^84 MG, 8 TOTAL DOSES^^
     Route: 045
     Dates: start: 20240610, end: 20240903
  10. SPRAVATO [Suspect]
     Active Substance: ESKETAMINE
     Dosage: ^^56 MG, 17 TOTAL DOSES^^
     Route: 045
     Dates: start: 20240923, end: 20250320
  11. SPRAVATO [Suspect]
     Active Substance: ESKETAMINE
     Dosage: ^^84 MG, 1 TOTAL DOSE^^
     Route: 045
     Dates: start: 20250331, end: 20250331
  12. SPRAVATO [Suspect]
     Active Substance: ESKETAMINE
     Dosage: ^^56 MG, 17 TOTAL DOSES^^
     Route: 045
     Dates: start: 20250410, end: 20251006
  13. SPRAVATO [Suspect]
     Active Substance: ESKETAMINE
     Dosage: ^^56 MG, 4 TOTAL DOSES^^
     Route: 045
     Dates: start: 20230123, end: 20230206

REACTIONS (8)
  - Hallucination, visual [Recovered/Resolved]
  - Suicidal ideation [Recovered/Resolved]
  - Drug ineffective [Unknown]
  - Feeling drunk [Unknown]
  - Cognitive disorder [Recovered/Resolved]
  - Chills [Unknown]
  - Nausea [Recovered/Resolved]
  - Off label use [Unknown]
